FAERS Safety Report 12522168 (Version 2)
Quarter: 2016Q4

REPORT INFORMATION
  Report Type: Report from Study
  Country: BR (occurrence: BR)
  Receive Date: 20160701
  Receipt Date: 20161205
  Transmission Date: 20170207
  Serious: Yes (Other)
  Sender: FDA-Public Use
  Company Number: BR-JNJFOC-20160310903

PATIENT
  Sex: Male
  Weight: 47 kg

DRUGS (1)
  1. REMICADE [Suspect]
     Active Substance: INFLIXIMAB
     Indication: CROHN^S DISEASE
     Route: 042
     Dates: start: 20160218

REACTIONS (2)
  - Intestinal perforation [Unknown]
  - Sepsis [Unknown]

NARRATIVE: CASE EVENT DATE: 2015
